FAERS Safety Report 21084817 (Version 1)
Quarter: 2022Q3

REPORT INFORMATION
  Report Type: Spontaneous
  Country: US (occurrence: US)
  Receive Date: 20220714
  Receipt Date: 20220714
  Transmission Date: 20221027
  Serious: Yes (Hospitalization, Other)
  Sender: FDA-Public Use
  Company Number: US-JNJFOC-20220706316

PATIENT
  Age: 78 Year
  Sex: Female

DRUGS (3)
  1. RYBREVANT [Suspect]
     Active Substance: AMIVANTAMAB-VMJW
     Indication: Lung adenocarcinoma
     Dosage: RECEIVED ABOUT 25 ML
     Route: 042
     Dates: start: 20220630, end: 20220630
  2. BENADRYL [Suspect]
     Active Substance: DIPHENHYDRAMINE HYDROCHLORIDE
     Indication: Premedication
     Dosage: THERAPY DATES NOT REPORTED
     Route: 065
  3. DEXAMETHASONE [Concomitant]
     Active Substance: DEXAMETHASONE
     Indication: Premedication
     Route: 065

REACTIONS (7)
  - Infusion related reaction [Recovered/Resolved]
  - Bradycardia [Unknown]
  - Mental impairment [Unknown]
  - Moaning [Unknown]
  - Mental status changes [Unknown]
  - Mydriasis [Unknown]
  - Pallor [Unknown]

NARRATIVE: CASE EVENT DATE: 20220630
